FAERS Safety Report 24905011 (Version 1)
Quarter: 2025Q1

REPORT INFORMATION
  Report Type: Spontaneous
  Country: US (occurrence: US)
  Receive Date: 20250130
  Receipt Date: 20250130
  Transmission Date: 20250409
  Serious: Yes (Other)
  Sender: PFIZER
  Company Number: US-PFIZER INC-PV202500011319

PATIENT

DRUGS (2)
  1. NURTEC ODT [Suspect]
     Active Substance: RIMEGEPANT SULFATE
     Dates: start: 2019, end: 2022
  2. GABAPENTIN [Suspect]
     Active Substance: GABAPENTIN
     Dates: start: 2019, end: 2022

REACTIONS (1)
  - Renal impairment [Unknown]
